FAERS Safety Report 6114340-1 (Version None)
Quarter: 2009Q1

REPORT INFORMATION
  Report Type: 
  Country: None (occurrence: None)
  Receive Date: 20090312
  Receipt Date: 20090302
  Transmission Date: 20090719
  Serious: No
  Sender: FDA-Public Use
  Company Number: US-ABBOTT-09P-163-0558047-00

PATIENT
  Sex: Female
  Weight: 83.536 kg

DRUGS (5)
  1. DEPAKOTE [Suspect]
     Indication: AGITATION
     Dosage: STARTED 6 DAYS AFTER ADMISSION TO HOSPITAL
     Dates: start: 20080106, end: 20090127
  2. DEPAKOTE [Suspect]
     Indication: AGGRESSION
  3. DEPAKOTE [Suspect]
  4. ZYPREXA [Suspect]
     Indication: POOR QUALITY SLEEP
     Dates: start: 20090113
  5. ZYPREXA [Suspect]
     Dates: end: 20090117

REACTIONS (10)
  - AGGRESSION [None]
  - AGITATION [None]
  - BRUXISM [None]
  - CRYING [None]
  - DROOLING [None]
  - HYPOTONIA [None]
  - ILL-DEFINED DISORDER [None]
  - INAPPROPRIATE AFFECT [None]
  - IRRITABILITY [None]
  - POSTURE ABNORMAL [None]
